FAERS Safety Report 16110898 (Version 1)
Quarter: 2019Q1

REPORT INFORMATION
  Report Type: Report from Study
  Country: ZA (occurrence: ZA)
  Receive Date: 20190325
  Receipt Date: 20190325
  Transmission Date: 20190418
  Serious: Yes (Hospitalization)
  Sender: FDA-Public Use
  Company Number: ZA-ROCHE-2287449

PATIENT
  Age: 52 Year
  Sex: Female

DRUGS (2)
  1. OXYGEN. [Concomitant]
     Active Substance: OXYGEN
  2. MABTHERA [Suspect]
     Active Substance: RITUXIMAB
     Indication: RHEUMATOID ARTHRITIS
     Dosage: DAY 1 AND 15, NEXT DOSE IS 6 MONTHS LATER
     Route: 042

REACTIONS (2)
  - Pulmonary fibrosis [Not Recovered/Not Resolved]
  - Bronchitis chronic [Unknown]

NARRATIVE: CASE EVENT DATE: 20190319
